FAERS Safety Report 12778302 (Version 1)
Quarter: 2016Q3

REPORT INFORMATION
  Report Type: Spontaneous
  Country: US (occurrence: US)
  Receive Date: 20160926
  Receipt Date: 20160926
  Transmission Date: 20161109
  Serious: Yes (Other)
  Sender: FDA-Public Use
  Company Number: US-ROCHE-1834515

PATIENT
  Age: 48 Year
  Sex: Male

DRUGS (5)
  1. FOLINIC ACID [Concomitant]
     Active Substance: LEUCOVORIN
  2. 5-FLUOROURACIL [Concomitant]
     Active Substance: FLUOROURACIL
  3. AVASTIN [Suspect]
     Active Substance: BEVACIZUMAB
     Indication: COLON CANCER
     Route: 065
     Dates: start: 201408, end: 201506
  4. AVASTIN [Suspect]
     Active Substance: BEVACIZUMAB
     Dosage: SINCE 20/JUL/2016, HE HAD 4 CYCLES OF BEVACIZUMAB
     Route: 065
     Dates: start: 20160720
  5. OXALIPLATIN. [Concomitant]
     Active Substance: OXALIPLATIN

REACTIONS (1)
  - Osteonecrosis [Unknown]
